FAERS Safety Report 7051687-9 (Version None)
Quarter: 2010Q4

REPORT INFORMATION
  Report Type: 
  Country: None (occurrence: None)
  Receive Date: 20101018
  Receipt Date: 20101018
  Transmission Date: 20110411
  Serious: Yes (Other)
  Sender: FDA-Public Use
  Company Number: None

PATIENT
  Sex: Male
  Weight: 12.8 kg

DRUGS (1)
  1. ETHACRYNIC ACID 50 MG ATON [Suspect]
     Indication: DIURETIC THERAPY
     Dosage: 12 MG ONCE IV BOLUS
     Route: 040
     Dates: start: 20100729, end: 20100729

REACTIONS (4)
  - CENTRAL VENOUS PRESSURE INCREASED [None]
  - HYPERTENSION [None]
  - OXYGEN SATURATION DECREASED [None]
  - PIGMENTATION DISORDER [None]
